FAERS Safety Report 21204099 (Version 1)
Quarter: 2022Q3

REPORT INFORMATION
  Report Type: Spontaneous
  Country: PH (occurrence: PH)
  Receive Date: 20220812
  Receipt Date: 20220812
  Transmission Date: 20221027
  Serious: Yes (Death, Hospitalization)
  Sender: FDA-Public Use
  Company Number: PH-STRIDES ARCOLAB LIMITED-2022SP010214

PATIENT
  Age: 46 Year
  Sex: Female

DRUGS (18)
  1. PHENOBARBITAL [Suspect]
     Active Substance: PHENOBARBITAL
     Indication: Generalised tonic-clonic seizure
     Dosage: 180 MILLIGRAM PER DAY
     Route: 065
  2. LEVETIRACETAM [Suspect]
     Active Substance: LEVETIRACETAM
     Indication: Generalised tonic-clonic seizure
     Dosage: UNK, INITIAL DOSE UNKNOWN
     Route: 042
  3. LEVETIRACETAM [Suspect]
     Active Substance: LEVETIRACETAM
     Dosage: 3 GRAM PER DAY
     Route: 042
  4. VALPROIC ACID [Suspect]
     Active Substance: VALPROIC ACID
     Indication: Generalised tonic-clonic seizure
     Dosage: UNK, INITIAL DOSE UNKNOWN
     Route: 042
  5. VALPROIC ACID [Suspect]
     Active Substance: VALPROIC ACID
     Dosage: 1.5 GRAM PER DAY
     Route: 042
  6. MIDAZOLAM [Suspect]
     Active Substance: MIDAZOLAM
     Indication: Generalised tonic-clonic seizure
     Dosage: 2 MILLIGRAM/KILOGRAM, EVERY HOUR, INFUSION
     Route: 065
  7. PERAMPANEL [Suspect]
     Active Substance: PERAMPANEL
     Indication: Generalised tonic-clonic seizure
     Dosage: 12 MILLIGRAM PER DAY
     Route: 065
  8. PHENYTOIN [Suspect]
     Active Substance: PHENYTOIN
     Indication: Generalised tonic-clonic seizure
     Dosage: 300 MILLIGRAM PER DAY
     Route: 065
  9. PREGABALIN [Suspect]
     Active Substance: PREGABALIN
     Indication: Generalised tonic-clonic seizure
     Dosage: 600 MILLIGRAM PER DAY
     Route: 065
  10. TOPIRAMATE [Suspect]
     Active Substance: TOPIRAMATE
     Indication: Generalised tonic-clonic seizure
     Dosage: 800 MILLIGRAM PER DAY
     Route: 065
  11. CLONAZEPAM [Suspect]
     Active Substance: CLONAZEPAM
     Indication: Generalised tonic-clonic seizure
     Dosage: 3 MILLIGRAM PER DAY
     Route: 065
  12. KETAMINE [Suspect]
     Active Substance: KETAMINE
     Indication: Generalised tonic-clonic seizure
     Dosage: 3 MILLIGRAM/KILOGRAM, EVERY HOUR, INFUSION
     Route: 065
  13. DEXAMETHASONE [Suspect]
     Active Substance: DEXAMETHASONE
     Indication: Generalised tonic-clonic seizure
     Dosage: 20 MILLIGRAM PER DAY
     Route: 042
  14. LACOSAMIDE [Suspect]
     Active Substance: LACOSAMIDE
     Indication: Generalised tonic-clonic seizure
     Dosage: 100 MILLIGRAM PER DAY
     Route: 065
  15. DIAZEPAM [Suspect]
     Active Substance: DIAZEPAM
     Indication: Generalised tonic-clonic seizure
     Dosage: UNK
     Route: 042
  16. ACYCLOVIR [Concomitant]
     Active Substance: ACYCLOVIR
     Indication: Evidence based treatment
     Dosage: UNK
     Route: 042
  17. ACYCLOVIR [Concomitant]
     Active Substance: ACYCLOVIR
     Indication: Encephalitis viral
  18. GANCICLOVIR [Concomitant]
     Active Substance: GANCICLOVIR
     Indication: Human herpesvirus 6 encephalitis
     Dosage: 250 MILLIGRAM, EVERY 12 HRS, 5 MG/KG
     Route: 042

REACTIONS (1)
  - Drug ineffective [Fatal]
